FAERS Safety Report 7959638-7 (Version None)
Quarter: 2011Q4

REPORT INFORMATION
  Report Type: 
  Country: None (occurrence: None)
  Receive Date: 20111206
  Receipt Date: 20111013
  Transmission Date: 20120403
  Serious: Yes (Death)
  Sender: FDA-Public Use
  Company Number: JP-ASTRAZENECA-2011SE62517

PATIENT
  Age: 72 Year
  Sex: Female

DRUGS (5)
  1. DIAZEPAM [Concomitant]
     Route: 048
  2. DEPAKENE [Concomitant]
     Route: 048
  3. LYRICA [Concomitant]
     Route: 048
  4. SEROQUEL [Suspect]
     Indication: INSOMNIA
     Route: 048
  5. HALCION [Concomitant]
     Route: 048

REACTIONS (2)
  - NEUROLEPTIC MALIGNANT SYNDROME [None]
  - PNEUMONIA ASPIRATION [None]
